FAERS Safety Report 7153876-1 (Version None)
Quarter: 2010Q4

REPORT INFORMATION
  Report Type: 
  Country: None (occurrence: None)
  Receive Date: 20101213
  Receipt Date: 20101119
  Transmission Date: 20110411
  Serious: Yes (Other)
  Sender: FDA-Public Use
  Company Number: US-PFIZER INC-2010105542

PATIENT
  Sex: Female
  Weight: 49 kg

DRUGS (9)
  1. NEURONTIN [Suspect]
     Indication: FIBROMYALGIA
     Dosage: 100 MG, 1X/DAY
     Route: 048
     Dates: start: 20100623, end: 20100101
  2. NEURONTIN [Suspect]
     Indication: VULVOVAGINAL PAIN
     Dosage: 100 MG, 2X/DAY
     Route: 048
     Dates: start: 20100101, end: 20100101
  3. NEURONTIN [Suspect]
     Dosage: 100 MG, 3X/DAY
  4. NEURONTIN [Suspect]
     Dosage: 200 MG, 2X/DAY
     Route: 048
     Dates: start: 20100101
  5. NAPROXEN [Suspect]
     Indication: BACK INJURY
  6. NAPROXEN [Suspect]
     Indication: BACK PAIN
  7. NAPROXEN [Suspect]
     Indication: PAIN
  8. XANAX [Concomitant]
     Dosage: 0.25 MG
  9. CLOBETASOL [Suspect]
     Indication: LICHEN SCLEROSUS

REACTIONS (5)
  - ABDOMINAL PAIN UPPER [None]
  - BACK INJURY [None]
  - BACK PAIN [None]
  - DRUG INEFFECTIVE [None]
  - PAIN [None]
